FAERS Safety Report 8830815 (Version 2)
Quarter: 2012Q4

REPORT INFORMATION
  Report Type: 
  Country: US (occurrence: US)
  Receive Date: 20121009
  Receipt Date: 20121015
  Transmission Date: 20130627
  Serious: No
  Sender: FDA-Public Use
  Company Number: US-PFIZER INC-2012245107

PATIENT
  Sex: Female

DRUGS (5)
  1. PROVERA [Suspect]
     Indication: HORMONE REPLACEMENT THERAPY
     Dosage: 2.5 mg, 1x/day
     Route: 048
     Dates: end: 2011
  2. PROVERA [Suspect]
     Dosage: 2.5 mg, 1x/day
     Route: 048
     Dates: start: 201209
  3. PREMARIN [Suspect]
     Indication: HORMONE REPLACEMENT THERAPY
     Dosage: 1.25 mg, 1x/day
     Dates: end: 2011
  4. PREMARIN [Suspect]
     Dosage: 1.25 mg, 1x/day
     Dates: start: 201209
  5. ASPIRIN [Concomitant]
     Dosage: UNK, as needed

REACTIONS (3)
  - Product quality issue [Unknown]
  - Blood alkaline phosphatase increased [Recovered/Resolved]
  - Feeling jittery [Not Recovered/Not Resolved]
